FAERS Safety Report 16581999 (Version 5)
Quarter: 2019Q3

REPORT INFORMATION
  Report Type: Spontaneous
  Country: BR (occurrence: BR)
  Receive Date: 20190717
  Receipt Date: 20190907
  Transmission Date: 20191004
  Serious: Yes (Hospitalization, Other)
  Sender: FDA-Public Use
  Company Number: BR-AMGEN-BRASP2019106043

PATIENT
  Age: 62 Year
  Sex: Female

DRUGS (1)
  1. ENBREL [Suspect]
     Active Substance: ETANERCEPT
     Indication: PRODUCT USED FOR UNKNOWN INDICATION
     Dosage: UNK
     Route: 065
     Dates: start: 2016, end: 2017

REACTIONS (11)
  - Pyrexia [Not Recovered/Not Resolved]
  - Lymphangitis [Unknown]
  - Bacterial infection [Unknown]
  - Cardiac disorder [Unknown]
  - Pain [Unknown]
  - Drug ineffective [Unknown]
  - Pharyngitis [Unknown]
  - Loss of personal independence in daily activities [Not Recovered/Not Resolved]
  - Pain in extremity [Unknown]
  - Erysipelas [Unknown]
  - Vasculitis [Not Recovered/Not Resolved]
